FAERS Safety Report 7352650-0 (Version None)
Quarter: 2011Q1

REPORT INFORMATION
  Report Type: 
  Country: None (occurrence: None)
  Receive Date: 20110315
  Receipt Date: 20110310
  Transmission Date: 20110831
  Serious: Yes (Disabling, Other)
  Sender: FDA-Public Use
  Company Number: IE-PFIZER INC-2011023935

PATIENT
  Age: 34 Year
  Sex: Male
  Weight: 69 kg

DRUGS (1)
  1. CHAMPIX [Suspect]
     Indication: SMOKING CESSATION THERAPY
     Dosage: 1 MG, 2X/DAY
     Route: 048
     Dates: end: 20110110

REACTIONS (1)
  - COMPLEX PARTIAL SEIZURES [None]
